FAERS Safety Report 17133171 (Version 2)
Quarter: 2020Q1

REPORT INFORMATION
  Report Type: Report from Study
  Country: GB (occurrence: GB)
  Receive Date: 20191210
  Receipt Date: 20200313
  Transmission Date: 20200409
  Serious: Yes (Other)
  Sender: FDA-Public Use
  Company Number: GB-EMD SERONO-9109531

PATIENT
  Age: 52 Year
  Sex: Female

DRUGS (3)
  1. MAVENCLAD [Suspect]
     Active Substance: CLADRIBINE
     Dosage: FIRST YEAR SECOND WEEK THERAPY: TWO TABLETS ON DAYS 1 AND 2 AND ONE TABLET ON DAYS 3 TO 5 (EACH 10 M
     Route: 048
     Dates: start: 201908
  2. TRIMETHOPRIM. [Concomitant]
     Active Substance: TRIMETHOPRIM
     Indication: PRODUCT USED FOR UNKNOWN INDICATION
     Dosage: EVERY EVENING REGULARLY.
  3. MAVENCLAD [Suspect]
     Active Substance: CLADRIBINE
     Indication: MULTIPLE SCLEROSIS
     Dosage: FIRST YEAR FIRST WEEK THERAPY: TWO TABLETS ON DAYS 1 TO 3 AND ONE TABLET ON DAYS 4 AND 5.
     Route: 048
     Dates: start: 20190715

REACTIONS (13)
  - Mouth ulceration [Unknown]
  - Muscular weakness [Unknown]
  - Malaise [Unknown]
  - Dizziness [Unknown]
  - Urinary tract infection [Unknown]
  - Pain [Not Recovered/Not Resolved]
  - Lymphocyte count decreased [Unknown]
  - Viral infection [Unknown]
  - Kidney infection [Unknown]
  - Gait disturbance [Unknown]
  - Lower respiratory tract infection [Not Recovered/Not Resolved]
  - Influenza like illness [Unknown]
  - Nasopharyngitis [Unknown]

NARRATIVE: CASE EVENT DATE: 201907
